FAERS Safety Report 25862711 (Version 1)
Quarter: 2025Q3

REPORT INFORMATION
  Report Type: Spontaneous
  Country: US (occurrence: US)
  Receive Date: 20250930
  Receipt Date: 20250930
  Transmission Date: 20251020
  Serious: Yes (Other)
  Sender: ZYDUS PHARM
  Company Number: US-CADILA HEALTHCARE LIMITED-US-ZYDUS-128679

PATIENT

DRUGS (9)
  1. FLUCONAZOLE [Suspect]
     Active Substance: FLUCONAZOLE
     Indication: Chronic inflammatory response syndrome
     Route: 065
  2. ITRACONAZOLE [Suspect]
     Active Substance: ITRACONAZOLE
     Indication: Chronic inflammatory response syndrome
     Route: 065
  3. NYSTATIN [Suspect]
     Active Substance: NYSTATIN
     Indication: Chronic inflammatory response syndrome
     Route: 065
  4. ZINC SULFATE [Suspect]
     Active Substance: ZINC SULFATE
     Indication: Nutritional supplementation
     Route: 065
  5. VITAMIN B [Suspect]
     Active Substance: VITAMIN B
     Indication: Nutritional supplementation
     Route: 065
  6. MAGNESIUM [Suspect]
     Active Substance: MAGNESIUM
     Indication: Nutritional supplementation
     Route: 065
  7. CHOLESTYRAMINE [Suspect]
     Active Substance: CHOLESTYRAMINE
     Indication: Chronic inflammatory response syndrome
     Route: 065
  8. ACTIVATED CHARCOAL [Suspect]
     Active Substance: ACTIVATED CHARCOAL
     Indication: Chronic inflammatory response syndrome
     Route: 065
  9. CHLORELLA VULGARIS [Suspect]
     Active Substance: CHLORELLA VULGARIS
     Indication: Chronic inflammatory response syndrome
     Route: 065

REACTIONS (3)
  - Drug intolerance [Unknown]
  - Hypersensitivity [Unknown]
  - Drug ineffective [Unknown]
